FAERS Safety Report 8794748 (Version 5)
Quarter: 2014Q2

REPORT INFORMATION
  Report Type: Report from Study
  Country: DK (occurrence: DK)
  Receive Date: 20120917
  Receipt Date: 20140624
  Transmission Date: 20141212
  Serious: Yes (Hospitalization)
  Sender: FDA-Public Use
  Company Number: DK-BAXTER-2012BAX014136

PATIENT
  Age: 66 Year
  Sex: Female
  Weight: 75.2 kg

DRUGS (14)
  1. SENDOXAN [Suspect]
     Indication: BREAST CANCER
     Route: 042
     Dates: start: 20120606, end: 20120808
  2. SENDOXAN [Suspect]
     Route: 042
     Dates: start: 20120813
  3. SENDOXAN [Suspect]
     Route: 042
     Dates: start: 20120716
  4. EPIRUBICIN [Suspect]
     Indication: BREAST CANCER
     Route: 042
     Dates: start: 20120606
  5. EPIRUBICIN [Suspect]
     Route: 042
     Dates: start: 20120716
  6. FLUOROURACIL [Suspect]
     Indication: BREAST CANCER
     Route: 042
     Dates: start: 20120606
  7. FLUOROURACIL [Suspect]
     Route: 042
     Dates: start: 20120716
  8. TRASTUZUMAB [Suspect]
     Indication: BREAST CANCER
     Dosage: LOADING DOSE
     Route: 042
     Dates: start: 20120813
  9. TRASTUZUMAB [Suspect]
     Indication: PRODUCT USED FOR UNKNOWN INDICATION
     Dosage: MAINTENANCE DOSE
     Route: 042
  10. TRASTUZUMAB [Suspect]
     Dosage: LOADING DOSE
     Route: 042
     Dates: start: 20120813
  11. TRASTUZUMAB [Suspect]
     Dosage: LOADING DOSE
     Route: 042
     Dates: start: 20120924
  12. DOCETAXEL [Suspect]
     Indication: BREAST CANCER
     Route: 042
     Dates: start: 20120813
  13. DOCETAXEL [Suspect]
     Route: 042
     Dates: start: 20120924
  14. NEULASTA [Concomitant]
     Indication: PRODUCT USED FOR UNKNOWN INDICATION
     Route: 065

REACTIONS (2)
  - Febrile neutropenia [Recovered/Resolved]
  - Skin infection [Recovered/Resolved with Sequelae]
